FAERS Safety Report 10869820 (Version 3)
Quarter: 2015Q4

REPORT INFORMATION
  Report Type: Spontaneous
  Country: US (occurrence: US)
  Receive Date: 20150226
  Receipt Date: 20151217
  Transmission Date: 20160304
  Serious: No
  Sender: FDA-Public Use
  Company Number: US-ROCHE-1545020

PATIENT
  Sex: Female

DRUGS (4)
  1. PRESERVISION [Concomitant]
     Active Substance: MINERALS\VITAMINS
  2. TAMIFLU [Suspect]
     Active Substance: OSELTAMIVIR PHOSPHATE
     Indication: INFLUENZA
     Route: 048
     Dates: start: 20150105
  3. LEVOTHYROXINE. [Concomitant]
     Active Substance: LEVOTHYROXINE
     Indication: THYROID NEOPLASM
  4. COREG [Concomitant]
     Active Substance: CARVEDILOL
     Indication: BLOOD PRESSURE MEASUREMENT

REACTIONS (7)
  - Abnormal behaviour [Unknown]
  - Paranoia [Unknown]
  - Aggression [Unknown]
  - Agitation [Unknown]
  - Anxiety [Unknown]
  - Hallucination, visual [Recovered/Resolved]
  - Fear [Unknown]
